FAERS Safety Report 15159505 (Version 2)
Quarter: 2018Q3

REPORT INFORMATION
  Report Type: Spontaneous
  Country: US (occurrence: US)
  Receive Date: 20180718
  Receipt Date: 20180819
  Transmission Date: 20181010
  Serious: No
  Sender: FDA-Public Use
  Company Number: US-009507513-1007USA01168

PATIENT
  Age: 30 Year
  Sex: Female

DRUGS (5)
  1. ISENTRESS [Suspect]
     Active Substance: RALTEGRAVIR POTASSIUM
     Dosage: 400 , QD
     Route: 048
  2. ETRAVIRINE [Suspect]
     Active Substance: ETRAVIRINE
     Dosage: 800, QD
     Route: 048
  3. DARUNAVIR [Suspect]
     Active Substance: DARUNAVIR
     Dosage: 1200 , QD
     Route: 048
  4. EMTRICITABINE (+) TENOFOVIR DISOPROXIL FUMARATE [Suspect]
     Active Substance: EMTRICITABINE\TENOFOVIR DISOPROXIL
     Dosage: 1 , QD
     Route: 048
  5. RITONAVIR. [Suspect]
     Active Substance: RITONAVIR
     Dosage: 200, QD
     Route: 048

REACTIONS (2)
  - No adverse event [Unknown]
  - Maternal exposure during pregnancy [Recovered/Resolved]
